FAERS Safety Report 5597635-X (Version None)
Quarter: 2008Q1

REPORT INFORMATION
  Report Type: 
  Country: None (occurrence: None)
  Receive Date: 20080121
  Receipt Date: 20080109
  Transmission Date: 20080703
  Serious: Yes (Hospitalization)
  Sender: FDA-Public Use
  Company Number: US-ELI_LILLY_AND_COMPANY-US200711001865

PATIENT
  Sex: Female
  Weight: 86.168 kg

DRUGS (3)
  1. PROZAC [Suspect]
     Indication: DEPRESSION
  2. REGLAN [Concomitant]
     Indication: NAUSEA
  3. IMITREX [Concomitant]
     Indication: MIGRAINE
     Dosage: 100 MG, AS NEEDED

REACTIONS (2)
  - ENCEPHALOPATHY [None]
  - HEADACHE [None]
